FAERS Safety Report 6414788-1 (Version None)
Quarter: 2009Q4

REPORT INFORMATION
  Report Type: 
  Country: None (occurrence: None)
  Receive Date: 20091026
  Receipt Date: 20091019
  Transmission Date: 20100525
  Serious: Yes (Hospitalization)
  Sender: FDA-Public Use
  Company Number: US-GILEAD-2009-0024904

PATIENT
  Sex: Female

DRUGS (9)
  1. LETAIRIS [Suspect]
     Indication: PULMONARY ARTERIAL HYPERTENSION
     Route: 048
     Dates: start: 20091019
  2. WARFARIN SODIUM [Concomitant]
  3. ASA LO-DOSE [Concomitant]
  4. SPIRONOLACT [Concomitant]
  5. HYDROCOD/GG [Concomitant]
  6. ESTRACE [Concomitant]
  7. IMITREX [Concomitant]
  8. DIPYRIDAMOLE [Concomitant]
  9. ASTEPRO [Concomitant]

REACTIONS (2)
  - INFECTION [None]
  - RENAL PAIN [None]
